FAERS Safety Report 4901785-8 (Version None)
Quarter: 2006Q1

REPORT INFORMATION
  Report Type: 
  Country: None (occurrence: None)
  Receive Date: 20060201
  Receipt Date: 20060201
  Transmission Date: 20060701
  Serious: Yes (Hospitalization)
  Sender: FDA-Public Use
  Company Number: None

PATIENT
  Age: 78 Year
  Sex: Male
  Weight: 99 kg

DRUGS (1)
  1. LYRICA [Suspect]
     Indication: NEUROPATHY PERIPHERAL
     Dosage: 75MG TWICE A DAY PO
     Route: 048
     Dates: start: 20060125, end: 20060130

REACTIONS (2)
  - BRADYCARDIA [None]
  - CONTRAINDICATION TO MEDICAL TREATMENT [None]
